FAERS Safety Report 5724157-5 (Version None)
Quarter: 2008Q2

REPORT INFORMATION
  Report Type: 
  Country: None (occurrence: None)
  Receive Date: 20080430
  Receipt Date: 20080425
  Transmission Date: 20081010
  Serious: Yes (Hospitalization)
  Sender: FDA-Public Use
  Company Number: PHRM2008FR01389

PATIENT
  Age: 54 Year
  Sex: Male

DRUGS (2)
  1. VOLTAREN [Suspect]
     Indication: SURGERY
     Route: 048
     Dates: start: 20070417, end: 20070525
  2. KETOPROFEN [Suspect]
     Indication: SURGERY
     Route: 030
     Dates: start: 20070407, end: 20080417

REACTIONS (7)
  - ABDOMINAL PAIN [None]
  - ABSCESS [None]
  - C-REACTIVE PROTEIN INCREASED [None]
  - DIVERTICULITIS [None]
  - INTESTINAL OBSTRUCTION [None]
  - PYREXIA [None]
  - SIGMOIDITIS [None]
